FAERS Safety Report 5656752-6 (Version None)
Quarter: 2008Q1

REPORT INFORMATION
  Report Type: 
  Country: None (occurrence: None)
  Receive Date: 20080310
  Receipt Date: 20080227
  Transmission Date: 20080703
  Serious: Yes (Death)
  Sender: FDA-Public Use
  Company Number: US-BAYER-200713231BWH

PATIENT
  Age: 91 Year
  Sex: Female

DRUGS (3)
  1. CIPRO [Suspect]
     Indication: DRUG USE FOR UNKNOWN INDICATION
     Route: 048
  2. LOTRISONE [Concomitant]
  3. K-DUR 10 [Concomitant]

REACTIONS (1)
  - DEATH [None]
